FAERS Safety Report 11222087 (Version 2)
Quarter: 2015Q4

REPORT INFORMATION
  Report Type: Spontaneous
  Country: US (occurrence: US)
  Receive Date: 20150626
  Receipt Date: 20151029
  Transmission Date: 20160304
  Serious: Yes (Hospitalization)
  Sender: FDA-Public Use
  Company Number: US-DSJP-DSU-2015-119479

PATIENT

DRUGS (2)
  1. ASPIRIN. [Concomitant]
     Active Substance: ASPIRIN
     Dosage: 81 MG, UNK
  2. BENICAR [Suspect]
     Active Substance: OLMESARTAN MEDOXOMIL
     Indication: HYPERTENSION
     Dosage: 20 MG, QD
     Dates: start: 20100804, end: 201406

REACTIONS (7)
  - Renal failure [Unknown]
  - Colitis [Unknown]
  - Malabsorption [Unknown]
  - Dizziness [Unknown]
  - Decreased appetite [Unknown]
  - Abdominal pain [Unknown]
  - Dyspepsia [Unknown]

NARRATIVE: CASE EVENT DATE: 2013
